FAERS Safety Report 13227709 (Version 2)
Quarter: 2017Q1

REPORT INFORMATION
  Report Type: Other
  Country: US (occurrence: US)
  Receive Date: 20170213
  Receipt Date: 20170302
  Transmission Date: 20170428
  Serious: Yes (Hospitalization)
  Sender: FDA-Public Use
  Company Number: US-UNITED THERAPEUTICS-UNT-2017-001708

PATIENT
  Age: 6 Year
  Sex: Female
  Weight: 19.96 kg

DRUGS (3)
  1. TRACLEER [Concomitant]
     Active Substance: BOSENTAN
     Indication: PRODUCT USED FOR UNKNOWN INDICATION
  2. REMODULIN [Suspect]
     Active Substance: TREPROSTINIL
     Indication: PULMONARY ARTERIAL HYPERTENSION
     Dosage: 0.125 ?G/KG, CONTINUING
     Route: 041
     Dates: start: 20160325
  3. SILDENAFIL CITRATE. [Concomitant]
     Active Substance: SILDENAFIL CITRATE
     Indication: PRODUCT USED FOR UNKNOWN INDICATION

REACTIONS (5)
  - Abdominal pain [Unknown]
  - Complication associated with device [Recovered/Resolved]
  - Pyrexia [Recovered/Resolved]
  - Injection site pain [Unknown]
  - Device related infection [Unknown]

NARRATIVE: CASE EVENT DATE: 20170108
